FAERS Safety Report 15376279 (Version 4)
Quarter: 2020Q2

REPORT INFORMATION
  Report Type: Spontaneous
  Country: IT (occurrence: IT)
  Receive Date: 20180912
  Receipt Date: 20200521
  Transmission Date: 20200713
  Serious: Yes (Death, Life-Threatening, Hospitalization, Other)
  Sender: FDA-Public Use
  Company Number: IT-MYLANLABS-2018M1067153

PATIENT
  Age: 61 Year
  Sex: Male

DRUGS (16)
  1. ETANERCEPT [Suspect]
     Active Substance: ETANERCEPT
     Indication: GRAFT VERSUS HOST DISEASE
     Dosage: FROM POST-OPERATIVE DAY 19
     Route: 058
     Dates: start: 2016
  2. ETANERCEPT [Suspect]
     Active Substance: ETANERCEPT
     Indication: ADJUVANT THERAPY
  3. METHYLPREDNISOLONE. [Suspect]
     Active Substance: METHYLPREDNISOLONE
     Dosage: FROM POST-OPERATIVE DAY 19
     Route: 065
     Dates: start: 2016
  4. CASPOFUNGIN [Suspect]
     Active Substance: CASPOFUNGIN
     Indication: ANTIFUNGAL PROPHYLAXIS
     Dosage: UNK
  5. GANCICLOVIR. [Suspect]
     Active Substance: GANCICLOVIR
     Indication: ANTIVIRAL TREATMENT
     Dosage: 5 MILLIGRAM/KILOGRAM, QD
     Route: 065
  6. METHYLPREDNISOLONE. [Suspect]
     Active Substance: METHYLPREDNISOLONE
     Indication: IMMUNOSUPPRESSANT DRUG THERAPY
     Dosage: STARTED FROM POST-OPERATIVE DAY 1
     Route: 065
     Dates: start: 201611, end: 2016
  7. ETANERCEPT [Suspect]
     Active Substance: ETANERCEPT
     Indication: IMMUNOSUPPRESSANT DRUG THERAPY
  8. DAPTOMYCIN. [Suspect]
     Active Substance: DAPTOMYCIN
     Indication: ANTIBIOTIC PROPHYLAXIS
  9. GRANULOCYTE COLONY STIMULATING FACTOR [Concomitant]
     Active Substance: GRANULOCYTE COLONY-STIMULATING FACTOR NOS
     Dosage: UNK
  10. MEROPENEM. [Suspect]
     Active Substance: MEROPENEM
     Indication: PROPHYLAXIS
     Dosage: UNK
  11. TACROLIMUS. [Suspect]
     Active Substance: TACROLIMUS
     Indication: IMMUNOSUPPRESSANT DRUG THERAPY
     Dosage: FROM POST-OPERATIVE DAY 19, LOWER DOSE
     Route: 065
     Dates: start: 2016
  12. TACROLIMUS. [Suspect]
     Active Substance: TACROLIMUS
     Dosage: 0.08 MG/KG, QD
     Route: 065
  13. TACROLIMUS. [Suspect]
     Active Substance: TACROLIMUS
     Dosage: STARTED FROM POST-OPERATIVE DAY 3; FROM POST OPERATIVE
     Route: 065
     Dates: start: 201611, end: 2016
  14. MEROPENEM. [Suspect]
     Active Substance: MEROPENEM
     Indication: ANTIBIOTIC PROPHYLAXIS
  15. EVEROLIMUS. [Suspect]
     Active Substance: EVEROLIMUS
     Indication: IMMUNOSUPPRESSANT DRUG THERAPY
     Dosage: STARTED FROM POST-OPERATIVE DAY 7 AND STOPPED ON POST
     Dates: start: 201611, end: 2016
  16. DAPTOMYCIN. [Suspect]
     Active Substance: DAPTOMYCIN
     Indication: PROPHYLAXIS
     Dosage: UNK

REACTIONS (22)
  - Multiple organ dysfunction syndrome [Fatal]
  - Septic shock [Fatal]
  - Graft versus host disease in skin [Unknown]
  - Aplastic anaemia [Unknown]
  - Haemoglobin decreased [Unknown]
  - Aspergillus infection [Fatal]
  - Platelet count decreased [Unknown]
  - Enteritis [Unknown]
  - Systemic inflammatory response syndrome [Unknown]
  - Chimerism [Unknown]
  - Leukopenia [Recovering/Resolving]
  - Intestinal haemorrhage [Unknown]
  - Rash [Fatal]
  - Drug ineffective [Unknown]
  - Enterococcal infection [Fatal]
  - Cytomegalovirus infection [Fatal]
  - Off label use [Fatal]
  - Diarrhoea [Unknown]
  - Graft versus host disease in gastrointestinal tract [Unknown]
  - Pyrexia [Fatal]
  - Malnutrition [Unknown]
  - Bone marrow disorder [Unknown]

NARRATIVE: CASE EVENT DATE: 2016
